FAERS Safety Report 18152610 (Version 1)
Quarter: 2020Q3

REPORT INFORMATION
  Report Type: Spontaneous
  Country: CA (occurrence: CA)
  Receive Date: 20200814
  Receipt Date: 20200814
  Transmission Date: 20201103
  Serious: Yes (Other)
  Sender: FDA-Public Use
  Company Number: CA-ANIPHARMA-2020-CA-001554

PATIENT
  Age: 57 Year
  Sex: Female

DRUGS (13)
  1. SPIRIVA [Concomitant]
     Active Substance: TIOTROPIUM BROMIDE MONOHYDRATE
     Dosage: 2 DF QD
     Route: 065
  2. VENTOLIN [Concomitant]
     Active Substance: ALBUTEROL SULFATE
     Route: 065
  3. NASONEX [Concomitant]
     Active Substance: MOMETASONE FUROATE
     Dosage: 1 DF QD / DOSE TEXT: UNKNOWN DOSE EVERY DAY
     Route: 065
  4. OMALIZUMAB. [Suspect]
     Active Substance: OMALIZUMAB
     Dosage: 2 DF QD / 2 DF QD / DOSE TEXT: UNKNOWN DOSE TWO TIMES DAILY / DOSE TEXT: UNKNOWN DOSE TWO TIMES
     Route: 058
  5. CANDESARTAN CILEXETIL. [Suspect]
     Active Substance: CANDESARTAN CILEXETIL
     Indication: HYPERTENSION
     Dosage: 16 MG QD / DOSE TEXT: UNKNOWN DOSE EVERY DAY / 1 DF QD
     Route: 048
  6. TRAZODONE [Concomitant]
     Active Substance: TRAZODONE HYDROCHLORIDE
     Dosage: 1 DF QD / DOSE TEXT: UNKNOWN DOSE EVERY DAY
     Route: 048
  7. BUPROPION. [Suspect]
     Active Substance: BUPROPION
     Dosage: 2 DF QD / DOSE TEXT: UNKNOWN DOSE TWO TIMES A DAY
     Route: 048
  8. CLONAZEPAM. [Suspect]
     Active Substance: CLONAZEPAM
     Dosage: 1 DF QD / DOSE TEXT: UNKNOWN DOSE EVERY DAY
     Route: 048
  9. ADVAIR HFA [Concomitant]
     Active Substance: FLUTICASONE PROPIONATE\SALMETEROL XINAFOATE
     Dosage: 1 DF QD/ DOSE TEXT: UNKNOWN DOSE EVERY DAY
     Route: 065
  10. SINGULAIR [Concomitant]
     Active Substance: MONTELUKAST SODIUM
     Dosage: 1 DF QD / DOSE TEXT: UNKNOWN DOSE EVERY DAY
     Route: 048
  11. TYLENOL [Concomitant]
     Active Substance: ACETAMINOPHEN
     Route: 065
  12. NAPROXEN. [Concomitant]
     Active Substance: NAPROXEN
     Route: 065
  13. PREDNISONE. [Concomitant]
     Active Substance: PREDNISONE
     Dosage: 30 MG QD / DOSE: 5 MG QD / DOSE: 25 MG QD / DOSE: 30 MG UNK
     Route: 048

REACTIONS (7)
  - Headache [Unknown]
  - Drug ineffective [Unknown]
  - Dyspnoea [Unknown]
  - Productive cough [Unknown]
  - Breast cancer [Unknown]
  - Sputum discoloured [Unknown]
  - Pneumonia [Unknown]
